FAERS Safety Report 18483790 (Version 1)
Quarter: 2020Q4

REPORT INFORMATION
  Report Type: Report from Study
  Country: None (occurrence: US)
  Receive Date: 20201109
  Receipt Date: 20201109
  Transmission Date: 20210114
  Serious: Yes (Hospitalization)
  Sender: FDA-Public Use
  Company Number: US-ABBVIE-20K-163-3642090-00

PATIENT
  Age: 53 Year
  Sex: Female

DRUGS (1)
  1. RINVOQ [Suspect]
     Active Substance: UPADACITINIB
     Indication: PRODUCT USED FOR UNKNOWN INDICATION
     Route: 048
     Dates: start: 20200812

REACTIONS (4)
  - Road traffic accident [Not Recovered/Not Resolved]
  - Spinal column injury [Not Recovered/Not Resolved]
  - SARS-CoV-2 test positive [Not Recovered/Not Resolved]
  - Appendicitis [Not Recovered/Not Resolved]

NARRATIVE: CASE EVENT DATE: 20201014
